FAERS Safety Report 23081139 (Version 1)
Quarter: 2023Q4

REPORT INFORMATION
  Report Type: Other
  Country: FR (occurrence: FR)
  Receive Date: 20231018
  Receipt Date: 20231018
  Transmission Date: 20240110
  Serious: Yes (Other)
  Sender: FDA-Public Use
  Company Number: FR-Stemline Therapeutics, Inc.-2023ST003690

PATIENT
  Sex: Female

DRUGS (1)
  1. ORSERDU [Suspect]
     Active Substance: ELACESTRANT
     Indication: Breast cancer metastatic
     Dosage: 400 MG/J
     Route: 048

REACTIONS (1)
  - Disease progression [Unknown]
